FAERS Safety Report 8991079 (Version 1)
Quarter: 2012Q4

REPORT INFORMATION
  Report Type: Spontaneous
  Country: US (occurrence: None)
  Receive Date: 20121220
  Receipt Date: 20121220
  Transmission Date: 20130627
  Serious: Yes (Other)
  Sender: FDA-Public Use
  Company Number: ADR-2012-02259

PATIENT

DRUGS (1)
  1. BACLOFEN INTRATHECAL - 500 MCG/M [Suspect]

REACTIONS (1)
  - Device malfunction [None]
